FAERS Safety Report 5237473-0 (Version None)
Quarter: 2007Q1

REPORT INFORMATION
  Report Type: 
  Country: None (occurrence: None)
  Receive Date: 20070213
  Receipt Date: 20070201
  Transmission Date: 20070707
  Serious: Yes (Life-Threatening, Hospitalization, Congenital Anomaly, Other)
  Sender: FDA-Public Use
  Company Number: US-ELI_LILLY_AND_COMPANY-US200702000511

PATIENT
  Sex: Female

DRUGS (2)
  1. HUMALOG [Suspect]
     Dosage: UNK, UNK
     Route: 064
  2. LANTUS [Concomitant]
     Route: 064

REACTIONS (9)
  - DRUG EXPOSURE DURING PREGNANCY [None]
  - DRUG EXPOSURE VIA BREAST MILK [None]
  - FOETAL DISTRESS SYNDROME [None]
  - HYPOGLYCAEMIA NEONATAL [None]
  - INTESTINAL MALROTATION [None]
  - NEONATAL HEPATOMEGALY [None]
  - PREMATURE BABY [None]
  - SOLITARY KIDNEY [None]
  - SPLEEN DISORDER [None]
